FAERS Safety Report 24963920 (Version 1)
Quarter: 2025Q1

REPORT INFORMATION
  Report Type: Report from Study
  Country: BR (occurrence: BR)
  Receive Date: 20250213
  Receipt Date: 20250213
  Transmission Date: 20250408
  Serious: Yes (Other)
  Sender: TAKEDA
  Company Number: BR-TAKEDA-2025TUS014319

PATIENT
  Sex: Female

DRUGS (2)
  1. VEDOLIZUMAB [Suspect]
     Active Substance: VEDOLIZUMAB
     Indication: Colitis ulcerative
     Dosage: 300 MILLIGRAM, Q4WEEKS
     Dates: start: 202410
  2. STELARA [Suspect]
     Active Substance: USTEKINUMAB
     Indication: Product used for unknown indication

REACTIONS (9)
  - Diarrhoea haemorrhagic [Unknown]
  - Tuberculosis [Unknown]
  - Pneumonia [Unknown]
  - Infection [Unknown]
  - Drug ineffective [Unknown]
  - Hypovitaminosis [Unknown]
  - Anaemia [Unknown]
  - Frequent bowel movements [Unknown]
  - Vomiting [Unknown]
